FAERS Safety Report 19036925 (Version 1)
Quarter: 2021Q1

REPORT INFORMATION
  Report Type: Other
  Country: DE (occurrence: DE)
  Receive Date: 20210322
  Receipt Date: 20210322
  Transmission Date: 20210420
  Serious: No
  Sender: FDA-Public Use
  Company Number: DE-LUPIN PHARMACEUTICALS INC.-2021-03450

PATIENT
  Age: 57 Year
  Sex: Female
  Weight: 72 kg

DRUGS (3)
  1. LAMOTRIGINE. [Suspect]
     Active Substance: LAMOTRIGINE
     Indication: NEURALGIA
     Dosage: STARTING WITH 1 X 25 MG, INCREASING TO 2 X 100 MG, DIFFERENT BATCHES, LASTLY 2057941
     Route: 048
  2. LAMOTRIGINE. [Suspect]
     Active Substance: LAMOTRIGINE
     Indication: SMALL FIBRE NEUROPATHY
  3. LAMOTRIGINE. [Suspect]
     Active Substance: LAMOTRIGINE
     Indication: PAIN
     Dosage: STARTING WITH 1 X 25 MG, INCREASING TO 2 X 100 MG, DIFFERENT BATCHES, LASTLY 2057941
     Route: 048
     Dates: start: 20200618

REACTIONS (5)
  - Skin erosion [Not Recovered/Not Resolved]
  - Pruritus [Not Recovered/Not Resolved]
  - Pustule [Not Recovered/Not Resolved]
  - Eczema [Not Recovered/Not Resolved]
  - Adverse reaction [Unknown]

NARRATIVE: CASE EVENT DATE: 20200618
